FAERS Safety Report 7406135-3 (Version None)
Quarter: 2011Q2

REPORT INFORMATION
  Report Type: 
  Country: None (occurrence: None)
  Receive Date: 20110411
  Receipt Date: 20110228
  Transmission Date: 20111010
  Serious: No
  Sender: FDA-Public Use
  Company Number: US-AMGEN-USASP2011011432

PATIENT
  Age: 50 Year
  Sex: Female

DRUGS (6)
  1. CLONAZEPAM [Concomitant]
  2. TRIAMCINOLONE [Concomitant]
  3. ESTROGENIC SUBSTANCE [Concomitant]
  4. VECTIBIX [Suspect]
     Indication: COLORECTAL CANCER METASTATIC
     Dosage: 300 MG, Q2WK
     Dates: start: 20101206
  5. OXYCODONE [Concomitant]
  6. DOXYCYCLINE [Concomitant]

REACTIONS (2)
  - RASH [None]
  - ANTIBIOTIC RESISTANT STAPHYLOCOCCUS TEST POSITIVE [None]
